FAERS Safety Report 14022605 (Version 2)
Quarter: 2017Q4

REPORT INFORMATION
  Report Type: Spontaneous
  Country: FR (occurrence: FR)
  Receive Date: 20170929
  Receipt Date: 20171010
  Transmission Date: 20180321
  Serious: No
  Sender: FDA-Public Use
  Company Number: FR-MERCK KGAA-2028176

PATIENT
  Sex: Male

DRUGS (3)
  1. ESOMEPRAZOLE MAGNESIUM. [Concomitant]
     Active Substance: ESOMEPRAZOLE MAGNESIUM
  2. NOVOTHYROX [Suspect]
     Active Substance: LEVOTHYROXINE SODIUM
     Indication: HYPOTHYROIDISM
     Dates: start: 2015, end: 2017
  3. ESOMEPRAZOLE MAGENISIUM [Concomitant]
     Active Substance: ESOMEPRAZOLE MAGNESIUM

REACTIONS (9)
  - Amnesia [Unknown]
  - Chest pain [Recovered/Resolved]
  - Insomnia [Unknown]
  - Tachycardia [Recovered/Resolved]
  - Fatigue [Unknown]
  - Nervousness [Unknown]
  - Blood thyroid stimulating hormone abnormal [Unknown]
  - Sleep disorder [Unknown]
  - Palpitations [Recovered/Resolved]
